FAERS Safety Report 6581924-6 (Version None)
Quarter: 2010Q1

REPORT INFORMATION
  Report Type: 
  Country: None (occurrence: None)
  Receive Date: 20100215
  Receipt Date: 20100203
  Transmission Date: 20100710
  Serious: Yes (Hospitalization)
  Sender: FDA-Public Use
  Company Number: US-ELI_LILLY_AND_COMPANY-US201002002312

PATIENT
  Sex: Female

DRUGS (7)
  1. CYMBALTA [Suspect]
  2. ISOFLURANE [Concomitant]
  3. LIDOCAINE 2% [Concomitant]
  4. EPINEPHRINE [Concomitant]
  5. ROBINUL [Concomitant]
  6. DECADRON [Concomitant]
  7. ANTIBIOTICS [Concomitant]

REACTIONS (5)
  - HOSPITALISATION [None]
  - MUSCULAR WEAKNESS [None]
  - NEUROMYOPATHY [None]
  - OCULOGYRIC CRISIS [None]
  - SURGERY [None]
